FAERS Safety Report 8569070-3 (Version None)
Quarter: 2012Q3

REPORT INFORMATION
  Report Type: 
  Country: None (occurrence: None)
  Receive Date: 20120803
  Receipt Date: 20120215
  Transmission Date: 20120928
  Serious: No
  Sender: FDA-Public Use
  Company Number: US-ABBOTT-12P-163-0904755-00

PATIENT
  Sex: Female

DRUGS (1)
  1. NIASPAN [Suspect]
     Indication: LIPIDS ABNORMAL
     Dosage: 500MG IN THE MORNING
     Dates: start: 20120210

REACTIONS (8)
  - PRURITUS [None]
  - HEADACHE [None]
  - ERYTHEMA [None]
  - BACK PAIN [None]
  - GINGIVAL BLEEDING [None]
  - ABDOMINAL PAIN [None]
  - DIZZINESS [None]
  - FLUSHING [None]
